FAERS Safety Report 5237625-X (Version None)
Quarter: 2007Q1

REPORT INFORMATION
  Report Type: 
  Country: None (occurrence: None)
  Receive Date: 20070214
  Receipt Date: 20070201
  Transmission Date: 20070707
  Serious: Yes (Other)
  Sender: FDA-Public Use
  Company Number: PHHO2006BR19121

PATIENT
  Age: 43 Year
  Sex: Male
  Weight: 86 kg

DRUGS (7)
  1. TRILEPTAL [Suspect]
     Indication: BIPOLAR DISORDER
     Dosage: 1/2 TAB AM, 1/2 TAB PM
     Route: 048
  2. TRILEPTAL [Suspect]
     Dosage: 600 MG, QD
     Route: 048
     Dates: start: 20020101
  3. CLOXAZOLAM [Concomitant]
  4. HALDOL [Concomitant]
  5. CENTRUM [Concomitant]
  6. FENERGAN [Concomitant]
  7. PANTOPRAZOLE SODIUM [Concomitant]
     Dosage: 40 MG

REACTIONS (13)
  - AMNESIA [None]
  - DRY SKIN [None]
  - GASTRITIS [None]
  - HALLUCINATION [None]
  - HEPATIC STEATOSIS [None]
  - MAJOR DEPRESSION [None]
  - MOOD ALTERED [None]
  - OEDEMA PERIPHERAL [None]
  - PSYCHOTIC DISORDER [None]
  - SOMNOLENCE [None]
  - SUICIDE ATTEMPT [None]
  - VISUAL ACUITY REDUCED [None]
  - VOMITING [None]
